FAERS Safety Report 23065775 (Version 3)
Quarter: 2024Q1

REPORT INFORMATION
  Report Type: Spontaneous
  Country: US (occurrence: US)
  Receive Date: 20231014
  Receipt Date: 20240207
  Transmission Date: 20240410
  Serious: No
  Sender: FDA-Public Use
  Company Number: US-SA-SAC20231010000349

PATIENT
  Age: 41 Year
  Sex: Male

DRUGS (12)
  1. ELOCTATE [Suspect]
     Active Substance: EFMOROCTOCOG ALFA
     Indication: Factor VIII deficiency
     Dosage: 5000 U (4500-5500), BIW (MONDAY AND THURSDAY) FOR PROPHYLAXIS
     Route: 042
     Dates: start: 201805
  2. ELOCTATE [Suspect]
     Active Substance: EFMOROCTOCOG ALFA
     Indication: Factor VIII deficiency
     Dosage: 5000 U (4500-5500), BIW (MONDAY AND THURSDAY) FOR PROPHYLAXIS
     Route: 042
     Dates: start: 201805
  3. ELOCTATE [Suspect]
     Active Substance: EFMOROCTOCOG ALFA
     Dosage: 5000 U (4500-5500), PRN (EVERY 24 HOURS X2 AS NEEDED) FOR BREAKTHROUGH BLEEDING
     Route: 042
     Dates: start: 201805
  4. ELOCTATE [Suspect]
     Active Substance: EFMOROCTOCOG ALFA
     Dosage: 5000 U (4500-5500), PRN (EVERY 24 HOURS X2 AS NEEDED) FOR BREAKTHROUGH BLEEDING
     Route: 042
     Dates: start: 201805
  5. ELOCTATE [Suspect]
     Active Substance: EFMOROCTOCOG ALFA
     Dosage: 4000 U
     Route: 042
     Dates: start: 202303
  6. ELOCTATE [Suspect]
     Active Substance: EFMOROCTOCOG ALFA
     Dosage: 4000 U
     Route: 042
     Dates: start: 202303
  7. ELOCTATE [Suspect]
     Active Substance: EFMOROCTOCOG ALFA
     Dosage: 1000 U
     Route: 042
     Dates: start: 2023
  8. ELOCTATE [Suspect]
     Active Substance: EFMOROCTOCOG ALFA
     Dosage: 1000 U
     Route: 042
     Dates: start: 2023
  9. ELOCTATE [Suspect]
     Active Substance: EFMOROCTOCOG ALFA
     Dosage: 5000 U (4500-5500), BIW (MONDAY AND THURSDAY) FOR PROPHYLAXIS
     Route: 042
     Dates: start: 2023
  10. ELOCTATE [Suspect]
     Active Substance: EFMOROCTOCOG ALFA
     Dosage: 5000 U (4500-5500), BIW (MONDAY AND THURSDAY) FOR PROPHYLAXIS
     Route: 042
     Dates: start: 2023
  11. ELOCTATE [Suspect]
     Active Substance: EFMOROCTOCOG ALFA
     Dosage: 5000 U (4500-5500), PRN (EVERY 24 HOURS AS NEEDED) FOR BREAKTHROUGH BLEEDING
     Route: 042
     Dates: start: 2023
  12. ELOCTATE [Suspect]
     Active Substance: EFMOROCTOCOG ALFA
     Dosage: 5000 U (4500-5500), PRN (EVERY 24 HOURS AS NEEDED) FOR BREAKTHROUGH BLEEDING
     Route: 042
     Dates: start: 2023

REACTIONS (2)
  - Haemorrhage [Not Recovered/Not Resolved]
  - Arthralgia [Unknown]

NARRATIVE: CASE EVENT DATE: 20230101
